FAERS Safety Report 5777424-3 (Version None)
Quarter: 2008Q2

REPORT INFORMATION
  Report Type: 
  Country: None (occurrence: None)
  Receive Date: 20080618
  Receipt Date: 20080609
  Transmission Date: 20081010
  Serious: Yes (Other)
  Sender: FDA-Public Use
  Company Number: GR-SANOFI-SYNTHELABO-A01200800155

PATIENT
  Age: 36 Year
  Sex: Female

DRUGS (2)
  1. LADOSE [Concomitant]
     Indication: DEPRESSION
     Dosage: UNK
     Route: 065
  2. STILNOX [Suspect]
     Indication: SLEEP DISORDER
     Dosage: 20 MG
     Route: 048

REACTIONS (2)
  - ABORTION SPONTANEOUS [None]
  - DRUG EXPOSURE DURING PREGNANCY [None]
